FAERS Safety Report 9059504 (Version 2)
Quarter: 2013Q1

REPORT INFORMATION
  Report Type: Spontaneous
  Country: JP (occurrence: JP)
  Receive Date: 20130211
  Receipt Date: 20130226
  Transmission Date: 20140127
  Serious: Yes (Other)
  Sender: FDA-Public Use
  Company Number: JP-OTSUKA-JP-2012-16758

PATIENT
  Age: 84 None
  Sex: Male
  Weight: 58 kg

DRUGS (9)
  1. SAMSCA [Suspect]
     Indication: CARDIAC FAILURE
     Dosage: 7.5 MG MILLIGRAM(S), QD
     Route: 048
     Dates: start: 20111018, end: 20111021
  2. LASIX [Concomitant]
     Indication: CARDIAC FAILURE
     Dosage: 20 MG MILLIGRAM(S), QD
     Route: 042
     Dates: start: 20111015, end: 20111021
  3. DOPUTAMIN [Concomitant]
     Indication: CARDIAC FAILURE
     Dosage: 216 MG MILLIGRAM(S), QD
     Route: 041
     Dates: start: 20111016, end: 20111020
  4. PREDOPA [Concomitant]
     Indication: CARDIAC FAILURE
     Dosage: 24 MG MILLIGRAM(S), QD
     Route: 041
     Dates: start: 20111016, end: 20111021
  5. PLAVIX [Concomitant]
     Indication: MYOCARDIAL INFARCTION
     Dosage: 75 MG MILLIGRAM(S), QD
     Route: 048
     Dates: start: 20111016, end: 20120511
  6. PARIET [Concomitant]
     Indication: PROPHYLAXIS
     Dosage: 10 MG MILLIGRAM(S), QD
     Route: 048
     Dates: start: 20111016
  7. BAYASPIRIN [Concomitant]
     Indication: MYOCARDIAL INFARCTION
     Dosage: 100 MG MILLIGRAM(S), QD
     Route: 048
     Dates: start: 20111016
  8. ASPARA POTASSIUM [Concomitant]
     Indication: HYPOKALAEMIA
     Dosage: 2700 MG MILLIGRAM(S), QD
     Route: 048
     Dates: start: 20111017, end: 20111023
  9. LENDORMIN [Concomitant]
     Indication: INSOMNIA
     Dosage: 0.25 MG MILLIGRAM(S), QD
     Route: 048
     Dates: start: 20111017, end: 20111024

REACTIONS (2)
  - Blood urea increased [Unknown]
  - Hypernatraemia [Recovered/Resolved]
